FAERS Safety Report 13194645 (Version 1)
Quarter: 2017Q1

REPORT INFORMATION
  Report Type: Spontaneous
  Country: US (occurrence: US)
  Receive Date: 20170207
  Receipt Date: 20170207
  Transmission Date: 20170428
  Serious: No
  Sender: FDA-Public Use
  Company Number: US-JAZZ-2016-US-013961

PATIENT
  Age: 33 Year
  Sex: Female
  Weight: 90.7 kg

DRUGS (19)
  1. PRIALT [Suspect]
     Active Substance: ZICONOTIDE ACETATE
     Indication: RADICULOPATHY
     Dosage: 0.114 ?G, QH
     Route: 037
  2. PRIALT [Suspect]
     Active Substance: ZICONOTIDE ACETATE
     Indication: LUMBAR RADICULOPATHY
     Dosage: MIN INFUSION ?G, QH
     Route: 037
     Dates: start: 20160727
  3. FLEXERIL [Concomitant]
     Active Substance: CYCLOBENZAPRINE HYDROCHLORIDE
     Dosage: 10 MG, QID PRN
  4. IBUPROFEN. [Concomitant]
     Active Substance: IBUPROFEN
     Dosage: 800 MG, UNK
  5. LORAZEPAM. [Concomitant]
     Active Substance: LORAZEPAM
     Dosage: 1 MG, QD PRN
  6. PRIALT [Suspect]
     Active Substance: ZICONOTIDE ACETATE
     Indication: POST LAMINECTOMY SYNDROME
     Dosage: UNK ?G, QH
     Route: 037
     Dates: start: 20160702
  7. PRIALT [Suspect]
     Active Substance: ZICONOTIDE ACETATE
     Indication: SPINAL PAIN
     Dosage: 0.108 ?G, QH
     Route: 037
  8. PRIALT [Suspect]
     Active Substance: ZICONOTIDE ACETATE
     Indication: INTERVERTEBRAL DISC DISORDER
     Dosage: 0.113 ?G, QH
     Route: 037
     Dates: start: 20160727
  9. ADDERALL [Concomitant]
     Active Substance: AMPHETAMINE ASPARTATE\AMPHETAMINE SULFATE\DEXTROAMPHETAMINE SACCHARATE\DEXTROAMPHETAMINE SULFATE
     Dosage: 10 MG, BID
  10. MAGNESIUM OXIDE. [Concomitant]
     Active Substance: MAGNESIUM OXIDE
     Dosage: 400 MG, QD 1 TAB
  11. NEURONTIN [Concomitant]
     Active Substance: GABAPENTIN
     Dosage: 300-600 MG, QD AT HS
  12. TYLENOL [Concomitant]
     Active Substance: ACETAMINOPHEN
  13. PRIALT [Suspect]
     Active Substance: ZICONOTIDE ACETATE
     Indication: INTERVERTEBRAL DISC DEGENERATION
     Dosage: 0.108 ?G, QH
     Route: 037
     Dates: start: 20160721
  14. ETODOLAC. [Concomitant]
     Active Substance: ETODOLAC
     Dosage: 300 MG, 1 TAB Q8H  PRN FOR 30 DAYS
  15. LORATADINE. [Concomitant]
     Active Substance: LORATADINE
     Dosage: 10 MG, QD 1 TAB
  16. PRIALT [Suspect]
     Active Substance: ZICONOTIDE ACETATE
     Indication: PAIN
     Dosage: UNK ?G, QH
     Route: 037
     Dates: start: 20160715
  17. BUSPAR [Concomitant]
     Active Substance: BUSPIRONE HYDROCHLORIDE
     Dosage: 10 MG, 2 TABS BID
  18. EXCEDRIN MIGRAINE [Concomitant]
     Active Substance: ACETAMINOPHEN\ASPIRIN\CAFFEINE
     Dosage: 250-250-65 MG, 2 TABS Q 8 HRS, PRN
  19. PAXIL [Concomitant]
     Active Substance: PAROXETINE HYDROCHLORIDE
     Dosage: 40 MG, BID

REACTIONS (10)
  - Memory impairment [Not Recovered/Not Resolved]
  - Device issue [Not Recovered/Not Resolved]
  - Unevaluable event [Not Recovered/Not Resolved]
  - Drug ineffective [Not Recovered/Not Resolved]
  - Insomnia [Not Recovered/Not Resolved]
  - Aphasia [Not Recovered/Not Resolved]
  - Muscle twitching [Not Recovered/Not Resolved]
  - Hallucination, auditory [Not Recovered/Not Resolved]
  - Off label use [Not Recovered/Not Resolved]
  - Mood altered [Not Recovered/Not Resolved]

NARRATIVE: CASE EVENT DATE: 2016
